FAERS Safety Report 7625631-7 (Version None)
Quarter: 2011Q3

REPORT INFORMATION
  Report Type: 
  Country: None (occurrence: None)
  Receive Date: 20110721
  Receipt Date: 20110719
  Transmission Date: 20111222
  Serious: No
  Sender: FDA-Public Use
  Company Number: US-PFIZER INC-2011163708

PATIENT
  Sex: Male
  Weight: 100 kg

DRUGS (11)
  1. DIOVAN HCT [Concomitant]
     Dosage: UNK
  2. MENTAX [Concomitant]
     Dosage: UNK
  3. ACETYLSALICYLIC ACID [Concomitant]
     Dosage: 325 MG, UNK
  4. AMBIEN [Concomitant]
     Dosage: 10 MG, UNK
  5. FISH OIL [Concomitant]
     Dosage: 1000 MG, UNK
  6. OXYCODONE [Concomitant]
     Indication: PAIN
     Dosage: 15 MG, UNK
  7. CHANTIX [Suspect]
     Indication: SMOKING CESSATION THERAPY
     Dosage: 0.5 MG, 1X/DAY
     Route: 048
     Dates: start: 20110701
  8. AMARYL [Concomitant]
     Dosage: 4 MG, UNK
  9. ADVAIR DISKUS 100/50 [Concomitant]
     Dosage: UNK
  10. ZOCOR [Concomitant]
     Indication: BLOOD CHOLESTEROL INCREASED
     Dosage: 80 MG, UNK
  11. HYDROCHLOROTHIAZIDE [Concomitant]
     Dosage: 25 MG, UNK

REACTIONS (2)
  - HEADACHE [None]
  - NAUSEA [None]
